FAERS Safety Report 4622344-0 (Version None)
Quarter: 2005Q1

REPORT INFORMATION
  Report Type: 
  Country: None (occurrence: None)
  Receive Date: 20050330
  Receipt Date: 20050322
  Transmission Date: 20050727
  Serious: Yes (Hospitalization, Disabling, Other)
  Sender: FDA-Public Use
  Company Number: 200512741GDDC

PATIENT
  Age: 84 Year
  Sex: Female

DRUGS (4)
  1. ARAVA [Suspect]
     Indication: RHEUMATOID ARTHRITIS
     Route: 048
     Dates: start: 20040301, end: 20050317
  2. PREDNISONE [Concomitant]
     Indication: RHEUMATOID ARTHRITIS
     Route: 048
  3. MOBIC [Concomitant]
     Indication: RHEUMATOID ARTHRITIS
     Dosage: DOSE: 7.5-15 MG
     Route: 048
  4. TYLENOL W/ CODEINE NO. 3 [Concomitant]
     Indication: PAIN
     Dosage: DOSE: 300 MG/15 MG/30 MG
     Route: 048

REACTIONS (6)
  - AMNESIA [None]
  - COGNITIVE DISORDER [None]
  - HAEMOGLOBIN DECREASED [None]
  - SYNCOPE [None]
  - VENTRICULAR TACHYCARDIA [None]
  - VITAMIN B12 DEFICIENCY [None]
